FAERS Safety Report 4760912-6 (Version None)
Quarter: 2005Q3

REPORT INFORMATION
  Report Type: 
  Country: None (occurrence: None)
  Receive Date: 20050902
  Receipt Date: 20050105
  Transmission Date: 20060218
  Serious: Yes (Life-Threatening, Hospitalization, Disabling)
  Sender: FDA-Public Use
  Company Number: DE-ABBOTT-05P-062-0285501-00

PATIENT
  Age: 37 Year
  Sex: Male

DRUGS (3)
  1. CLARITHROMYCIN [Suspect]
     Indication: HELICOBACTER INFECTION
  2. PANTOPRAZOLE [Suspect]
     Indication: HELICOBACTER INFECTION
  3. AMOXICILLIN [Suspect]
     Indication: HELICOBACTER INFECTION

REACTIONS (4)
  - CARDIAC ARREST [None]
  - CEREBRAL DISORDER [None]
  - LONG QT SYNDROME [None]
  - VENTRICULAR FIBRILLATION [None]
